FAERS Safety Report 7685869-X (Version None)
Quarter: 2011Q3

REPORT INFORMATION
  Report Type: 
  Country: None (occurrence: None)
  Receive Date: 20110816
  Receipt Date: 20110804
  Transmission Date: 20111222
  Serious: Yes (Hospitalization, Other)
  Sender: FDA-Public Use
  Company Number: US-BAYER-2011-009505

PATIENT
  Age: 46 Year
  Sex: Female
  Weight: 90 kg

DRUGS (1)
  1. YAZ [Suspect]
     Dosage: UNK
     Dates: start: 20061201, end: 20071201

REACTIONS (4)
  - EMOTIONAL DISTRESS [None]
  - PAIN [None]
  - PULMONARY EMBOLISM [None]
  - ANXIETY [None]
